FAERS Safety Report 8215481-5 (Version None)
Quarter: 2012Q1

REPORT INFORMATION
  Report Type: 
  Country: None (occurrence: None)
  Receive Date: 20120316
  Receipt Date: 20120302
  Transmission Date: 20120608
  Serious: Yes (Life-Threatening)
  Sender: FDA-Public Use
  Company Number: JP-ROCHE-1041500

PATIENT
  Age: 53 Year
  Sex: Female

DRUGS (2)
  1. EPOGIN S [Suspect]
     Indication: NEPHROGENIC ANAEMIA
     Route: 042
  2. MIRCERA [Suspect]
     Indication: NEPHROGENIC ANAEMIA
     Route: 058
     Dates: start: 20111202, end: 20120215

REACTIONS (1)
  - EOSINOPHILIC PNEUMONIA [None]
